FAERS Safety Report 6174428-6 (Version None)
Quarter: 2009Q2

REPORT INFORMATION
  Report Type: 
  Country: None (occurrence: None)
  Receive Date: 20090430
  Receipt Date: 20080603
  Transmission Date: 20091009
  Serious: No
  Sender: FDA-Public Use
  Company Number: US-ASTRAZENECA-2008UW11158

PATIENT
  Sex: Male

DRUGS (3)
  1. NEXIUM [Suspect]
     Indication: GASTROOESOPHAGEAL REFLUX DISEASE
     Route: 048
     Dates: start: 20080501
  2. AMOXICILLIN [Concomitant]
  3. CLARITHROMYCIN [Concomitant]

REACTIONS (2)
  - DRUG INEFFECTIVE [None]
  - HELICOBACTER INFECTION [None]
